FAERS Safety Report 7060788-0 (Version None)
Quarter: 2010Q4

REPORT INFORMATION
  Report Type: 
  Country: None (occurrence: None)
  Receive Date: 20101025
  Receipt Date: 20101020
  Transmission Date: 20110411
  Serious: Yes (Hospitalization)
  Sender: FDA-Public Use
  Company Number: KR-WATSON-2010-14026

PATIENT
  Age: 74 Year
  Sex: Female

DRUGS (2)
  1. FLUOROURACIL [Suspect]
     Indication: COLON CANCER
     Dosage: 950 MG, SINGLE
     Route: 040
  2. FOLINIC ACID [Suspect]
     Indication: COLON CANCER
     Dosage: 85 MG/M2, SINGLE INFUSION
     Route: 042

REACTIONS (2)
  - ENCEPHALOPATHY [None]
  - HYPERAMMONAEMIA [None]
